FAERS Safety Report 8816193 (Version 2)
Quarter: 2013Q1

REPORT INFORMATION
  Report Type: Report from Study
  Country: JP (occurrence: JP)
  Receive Date: 20120929
  Receipt Date: 20130212
  Transmission Date: 20140127
  Serious: Yes (Disabling, Other)
  Sender: FDA-Public Use
  Company Number: JP-009507513-2012SP027555

PATIENT
  Age: 71 Year
  Sex: Female
  Weight: 53 kg

DRUGS (18)
  1. PEGINTRON [Suspect]
     Indication: CHRONIC HEPATITIS C
     Dosage: 1.0 MICROG/KG, QW
     Route: 058
     Dates: start: 20120307, end: 20120815
  2. REBETOL [Suspect]
     Indication: CHRONIC HEPATITIS C
     Dosage: 400 MG, QD
     Route: 048
     Dates: start: 20120307, end: 20120410
  3. REBETOL [Suspect]
     Dosage: 200 MG, QD
     Route: 048
     Dates: start: 20120411, end: 20120417
  4. REBETOL [Suspect]
     Dosage: 200 MG, QD
     Route: 048
     Dates: start: 20120425, end: 20120605
  5. REBETOL [Suspect]
     Dosage: 200 MG, QD
     Route: 048
     Dates: start: 20120711, end: 20120822
  6. TELAVIC [Suspect]
     Indication: CHRONIC HEPATITIS C
     Dosage: 1500 MG, QD
     Route: 048
     Dates: start: 20120307, end: 20120417
  7. TELAVIC [Suspect]
     Dosage: 1500 MG, QD
     Route: 048
     Dates: start: 20120425, end: 20120530
  8. TELAVIC [Suspect]
     Dosage: 2250 MG, QD
     Route: 048
     Dates: start: 20120425
  9. JANUVIA TABLETS 25MG [Concomitant]
     Indication: DIABETES MELLITUS
     Dosage: 50 MG, QD
     Route: 048
  10. ZYLORIC [Concomitant]
     Indication: PROPHYLAXIS
     Dosage: FORMULATION POR
     Route: 048
     Dates: start: 20120320
  11. MAGLAX [Concomitant]
     Indication: PROPHYLAXIS
     Dosage: 500 MG, QD FORMULATION POR
     Route: 048
     Dates: start: 20120307
  12. MAGLAX [Concomitant]
     Dosage: 1500 MG, QD
     Route: 048
  13. PROMAC (POLAPREZINC) [Concomitant]
     Indication: PROPHYLAXIS
     Dosage: FORMULATION POR
     Route: 048
     Dates: start: 20120307
  14. GLAKAY [Concomitant]
     Route: 048
  15. ALFAROL [Concomitant]
     Route: 048
  16. NU-LOTAN [Concomitant]
     Dosage: UNK
     Route: 048
  17. LOXONIN [Concomitant]
     Indication: PROPHYLAXIS
     Dosage: 60 MG, QD
     Route: 048
     Dates: start: 20120307, end: 20120309
  18. MUCOSTA [Concomitant]
     Indication: PROPHYLAXIS
     Dosage: 100 MG, QD
     Route: 048
     Dates: start: 20120307, end: 20120424

REACTIONS (2)
  - VIIth nerve paralysis [Recovered/Resolved]
  - Haemoglobin decreased [Recovered/Resolved]
